FAERS Safety Report 6428230-8 (Version None)
Quarter: 2009Q4

REPORT INFORMATION
  Report Type: 
  Country: None (occurrence: None)
  Receive Date: 20091104
  Receipt Date: 20091104
  Transmission Date: 20100525
  Serious: Yes (Hospitalization)
  Sender: FDA-Public Use
  Company Number: None

PATIENT
  Age: 64 Year

DRUGS (1)
  1. WARFARIN SODIUM [Suspect]
     Indication: VASCULAR OPERATION
     Dosage: 5 MG EVERY DAY PO
     Route: 048
     Dates: start: 20070910

REACTIONS (5)
  - ANAEMIA [None]
  - CARDIAC ARREST [None]
  - INCISION SITE HAEMORRHAGE [None]
  - INTERNATIONAL NORMALISED RATIO INCREASED [None]
  - RESPIRATORY FAILURE [None]
